FAERS Safety Report 7113675-3 (Version None)
Quarter: 2010Q4

REPORT INFORMATION
  Report Type: 
  Country: None (occurrence: None)
  Receive Date: 20101119
  Receipt Date: 20101110
  Transmission Date: 20110411
  Serious: Yes (Other)
  Sender: FDA-Public Use
  Company Number: US-JNJFOC-20101103884

PATIENT
  Sex: Female
  Weight: 54.43 kg

DRUGS (2)
  1. REMICADE [Suspect]
     Indication: CROHN'S DISEASE
     Route: 042
  2. TRAMADOL HCL [Concomitant]
     Indication: ARTHRALGIA
     Dosage: AS NEEDED
     Route: 048

REACTIONS (3)
  - CONJUNCTIVITIS INFECTIVE [None]
  - CONVULSION [None]
  - MEMORY IMPAIRMENT [None]
